FAERS Safety Report 8208746-4 (Version None)
Quarter: 2012Q1

REPORT INFORMATION
  Report Type: 
  Country: None (occurrence: None)
  Receive Date: 20120314
  Receipt Date: 20120312
  Transmission Date: 20120608
  Serious: Yes (Hospitalization, Other)
  Sender: FDA-Public Use
  Company Number: US-PFIZER INC-2012065928

PATIENT
  Sex: Female
  Weight: 89.8 kg

DRUGS (5)
  1. PRISTIQ [Suspect]
     Dosage: UNK
     Route: 048
  2. PRISTIQ [Suspect]
     Indication: DEPRESSION
     Dosage: 50 MG, DAILY
     Route: 048
  3. PRISTIQ [Suspect]
     Dosage: 100 MG, DAILY
     Route: 048
  4. PRISTIQ [Suspect]
     Dosage: 50 MG, EVERY OTHER DAY
     Route: 048
     Dates: start: 20120101
  5. PRISTIQ [Suspect]
     Dosage: 50 MG, DAILY
     Route: 048

REACTIONS (1)
  - MULTIPLE SCLEROSIS [None]
